FAERS Safety Report 24977830 (Version 2)
Quarter: 2025Q1

REPORT INFORMATION
  Report Type: Spontaneous
  Country: BG (occurrence: BG)
  Receive Date: 20250217
  Receipt Date: 20250312
  Transmission Date: 20250409
  Serious: Yes (Other)
  Sender: PURDUE
  Company Number: BG-TAKEDA-2025TUS009758

PATIENT
  Age: 36 Year
  Sex: Female
  Weight: 65 kg

DRUGS (3)
  1. MORPHINE SULFATE [Suspect]
     Active Substance: MORPHINE SULFATE
     Indication: Spinal anaesthesia
     Dosage: 100 MICROGRAM, DAILY (100 MICROGRAM, QD)
     Route: 037
  2. MORPHINE SULFATE [Suspect]
     Active Substance: MORPHINE SULFATE
     Indication: Spinal anaesthesia
     Dosage: 100 MICROGRAM, DAILY (100 MICROGRAM, QD)
     Route: 037
  3. BUPIVACAINE [Concomitant]
     Active Substance: BUPIVACAINE
     Indication: Spinal anaesthesia
     Route: 037

REACTIONS (3)
  - Thrombocytopenia [Recovered/Resolved]
  - Maternal exposure during delivery [Recovered/Resolved]
  - No adverse event [Unknown]
